FAERS Safety Report 8961027 (Version 1)
Quarter: 2012Q4

REPORT INFORMATION
  Report Type: 
  Country: US (occurrence: US)
  Receive Date: 20121213
  Receipt Date: 20121213
  Transmission Date: 20130627
  Serious: No
  Sender: FDA-Public Use
  Company Number: US-BAYER-2012-130267

PATIENT
  Age: 29 Year
  Sex: Female
  Weight: 181.41 kg

DRUGS (1)
  1. MIRENA [Suspect]
     Indication: CONTRACEPTION
     Dosage: 20 mcg/24hr, CONT
     Route: 015
     Dates: start: 20121204, end: 20121204

REACTIONS (2)
  - Device difficult to use [None]
  - Device deployment issue [None]
